FAERS Safety Report 6818455-1 (Version None)
Quarter: 2010Q3

REPORT INFORMATION
  Report Type: 
  Country: None (occurrence: None)
  Receive Date: 20100706
  Receipt Date: 20080802
  Transmission Date: 20110219
  Serious: No
  Sender: FDA-Public Use
  Company Number: US-PFIZER INC-2008053653

PATIENT
  Sex: Female
  Weight: 93.44 kg

DRUGS (2)
  1. AZITHROMYCIN [Suspect]
     Indication: OROPHARYNGEAL PAIN
     Dates: start: 20080523, end: 20080525
  2. AZITHROMYCIN [Suspect]
     Indication: SALIVARY GLAND ENLARGEMENT

REACTIONS (1)
  - PRURITUS [None]
